FAERS Safety Report 5773158-X (Version None)
Quarter: 2008Q2

REPORT INFORMATION
  Report Type: 
  Country: None (occurrence: None)
  Receive Date: 20080616
  Receipt Date: 20080314
  Transmission Date: 20081010
  Serious: No
  Sender: FDA-Public Use
  Company Number: US-BAYER-200811177BCC

PATIENT
  Age: 69 Year
  Sex: Female

DRUGS (3)
  1. ALEVE [Suspect]
     Indication: ARTHRALGIA
     Route: 048
  2. HIGH BLOOD PRESSURE MEDICATION [Concomitant]
  3. ESTROGEN [Concomitant]

REACTIONS (1)
  - ARTHRALGIA [None]
